FAERS Safety Report 7719528-1 (Version None)
Quarter: 2011Q3

REPORT INFORMATION
  Report Type: 
  Country: None (occurrence: None)
  Receive Date: 20110830
  Receipt Date: 20110825
  Transmission Date: 20111222
  Serious: Yes (Hospitalization)
  Sender: FDA-Public Use
  Company Number: PHHY2011NL76163

PATIENT

DRUGS (1)
  1. PROPRANOLOL [Suspect]
     Indication: HAEMANGIOMA

REACTIONS (3)
  - HYPOTENSION [None]
  - BRONCHIAL HYPERREACTIVITY [None]
  - BLOOD PRESSURE DIASTOLIC [None]
